FAERS Safety Report 9386445 (Version 1)
Quarter: 2013Q3

REPORT INFORMATION
  Report Type: Spontaneous
  Country: US (occurrence: US)
  Receive Date: 20130708
  Receipt Date: 20130708
  Transmission Date: 20140515
  Serious: Yes (Other)
  Sender: FDA-Public Use
  Company Number: US-BRISTOL-MYERS SQUIBB COMPANY-19073071

PATIENT
  Age: 56 Year
  Sex: Male

DRUGS (1)
  1. BYDUREON [Suspect]

REACTIONS (3)
  - Shoulder operation [Unknown]
  - Asthenia [Recovered/Resolved]
  - Weight decreased [Unknown]
